FAERS Safety Report 19496163 (Version 1)
Quarter: 2021Q3

REPORT INFORMATION
  Report Type: Other
  Country: IR (occurrence: IR)
  Receive Date: 20210706
  Receipt Date: 20210706
  Transmission Date: 20211014
  Serious: Yes (Other)
  Sender: FDA-Public Use
  Company Number: IR-ROCHE-2859140

PATIENT

DRUGS (1)
  1. CAPECITABINE. [Suspect]
     Active Substance: CAPECITABINE
     Indication: RECTAL CANCER
     Dosage: 5 DAYS A WEEK
     Route: 065

REACTIONS (5)
  - Neutropenia [Unknown]
  - Dermatitis [Unknown]
  - Cystitis [Unknown]
  - Anaemia [Unknown]
  - Colitis [Unknown]
